FAERS Safety Report 8792223 (Version 1)
Quarter: 2012Q4

REPORT INFORMATION
  Report Type: 
  Country: US (occurrence: US)
  Receive Date: 20120918
  Receipt Date: 20120918
  Transmission Date: 20130627
  Serious: Yes (Hospitalization, Other)
  Sender: FDA-Public Use
  Company Number: US-COVIDIEN/TYCO HEALTHCARE/MALLINCKRODT-T201203358

PATIENT
  Age: 23 Year
  Sex: Male

DRUGS (6)
  1. TOFRANIL [Suspect]
     Indication: PAIN
     Dosage: UNK
     Route: 061
  2. CLONIDINE [Suspect]
     Dosage: UNK
     Route: 061
  3. KETAMINE [Suspect]
     Dosage: UNK
     Route: 061
  4. GABAPENTIN [Suspect]
     Dosage: UNK
     Route: 061
  5. LIDOCAINE [Suspect]
     Dosage: UNK
     Route: 061
  6. MEFENAMIC ACID [Suspect]
     Dosage: UNK
     Route: 061

REACTIONS (7)
  - Toxicity to various agents [Recovered/Resolved]
  - Subarachnoid haemorrhage [Recovered/Resolved]
  - Mydriasis [Recovered/Resolved]
  - Rash [Recovered/Resolved]
  - Bradycardia [None]
  - Hypotension [None]
  - Body temperature decreased [None]
